FAERS Safety Report 4666251-6 (Version None)
Quarter: 2005Q2

REPORT INFORMATION
  Report Type: 
  Country: None (occurrence: None)
  Receive Date: 20050518
  Receipt Date: 20050518
  Transmission Date: 20051028
  Serious: Yes (Other)
  Sender: FDA-Public Use
  Company Number: None

PATIENT
  Sex: Female

DRUGS (14)
  1. ADVAIR DISKUS 250/50 [Suspect]
     Dosage: 1 PUFF Q12H
     Dates: start: 20050312
  2. ADVAIR DISKUS 250/50 [Suspect]
     Dosage: 1 PUFF Q12H
     Dates: start: 20050330
  3. ACETAMINOPHEN [Concomitant]
  4. ALPRAZOLAM [Concomitant]
  5. ASPIRIN [Concomitant]
  6. CELEBREX [Concomitant]
  7. COZAAR [Concomitant]
  8. DILTIAZEM [Concomitant]
  9. FESO4 [Concomitant]
  10. GABAPENTIN [Concomitant]
  11. LEVOXYL [Concomitant]
  12. REMINYL [Concomitant]
  13. TRAZADONE [Concomitant]
  14. ZOLOFT [Concomitant]

REACTIONS (4)
  - AGITATION [None]
  - SPEECH DISORDER [None]
  - THOUGHT BLOCKING [None]
  - URTICARIA [None]
